FAERS Safety Report 8762191 (Version 4)
Quarter: 2012Q4

REPORT INFORMATION
  Report Type: 
  Country: BR (occurrence: BR)
  Receive Date: 20120828
  Receipt Date: 20121005
  Transmission Date: 20130627
  Serious: Yes (Other)
  Sender: FDA-Public Use
  Company Number: BR-PFIZER INC-2012209884

PATIENT
  Age: 56 Year
  Sex: Female
  Weight: 56 kg

DRUGS (14)
  1. CHAMPIX [Suspect]
     Indication: SMOKING CESSATION THERAPY
     Dosage: UNK
     Route: 048
     Dates: start: 2004
  2. CHAMPIX [Suspect]
     Dosage: 1 mg, 2x/day (12 / 12 hours)
     Route: 048
  3. CHAMPIX [Suspect]
     Dosage: UNK
     Route: 048
     Dates: start: 2007
  4. CHAMPIX [Suspect]
     Dosage: UNK
     Route: 048
     Dates: start: 201209, end: 2012
  5. CHAMPIX [Suspect]
     Dosage: two tablets, daily
     Route: 048
     Dates: start: 2012
  6. FLUDROCORTISONE ACETATE [Concomitant]
     Indication: BLOOD PRESSURE DECREASED
     Dosage: UNK
  7. ATENOLOL [Concomitant]
     Indication: ARRHYTHMIA
     Dosage: UNK
  8. ATENOLOL [Concomitant]
     Indication: TACHYCARDIA
  9. ATENOLOL [Concomitant]
     Indication: CARDIAC DISORDER
  10. ATENOLOL [Concomitant]
     Indication: HYPERTENSION
  11. PANTOPRAZOLE [Concomitant]
     Indication: GASTROOESOPHAGEAL REFLUX DISEASE
     Dosage: two tablets or capsules daily
  12. ALENDRONATE SODIUM [Concomitant]
     Indication: OSTEOPENIA
     Dosage: UNK
  13. LEVOID [Concomitant]
     Indication: HYPOTHYROIDISM
     Dosage: one tablet or capsule daily
  14. RIVOTRIL [Concomitant]
     Indication: INSOMNIA
     Dosage: UNK

REACTIONS (11)
  - Depression [Unknown]
  - Lack of spontaneous speech [Unknown]
  - Dry mouth [Unknown]
  - Irritability [Unknown]
  - Somnolence [Unknown]
  - Insomnia [Unknown]
  - Abdominal pain upper [Unknown]
  - Palpitations [Unknown]
  - Cardiac disorder [Unknown]
  - Platelet count decreased [Unknown]
  - Abdominal discomfort [Unknown]
